FAERS Safety Report 23987703 (Version 1)
Quarter: 2024Q2

REPORT INFORMATION
  Report Type: Spontaneous
  Country: US (occurrence: US)
  Receive Date: 20240619
  Receipt Date: 20240619
  Transmission Date: 20240715
  Serious: Yes (Hospitalization, Other)
  Sender: FDA-Public Use
  Company Number: US-AVET LIFESCIENCES LTD-2024-AVET-000218

PATIENT
  Age: 32 Year
  Sex: Male

DRUGS (8)
  1. PROPOFOL [Suspect]
     Active Substance: PROPOFOL
     Indication: Craniotomy
     Dosage: 120 ?G/KG/MIN
     Route: 042
  2. LIDOCAINE [Concomitant]
     Active Substance: LIDOCAINE
     Dosage: UNK
  3. ROCURONIUM [Concomitant]
     Active Substance: ROCURONIUM BROMIDE
     Dosage: UNK
  4. REMIFENTANIL [Concomitant]
     Active Substance: REMIFENTANIL
     Dosage: 0.08 ?G/KG/MIN
  5. SEVOFLURANE [Concomitant]
     Active Substance: SEVOFLURANE
     Dosage: UP TO 0.8%.
  6. DEXAMETHASONE [Concomitant]
     Active Substance: DEXAMETHASONE
     Dosage: UNK
  7. MANNITOL [Concomitant]
     Active Substance: MANNITOL
     Dosage: UNK
  8. NICARDIPINE [Concomitant]
     Active Substance: NICARDIPINE
     Dosage: UP TO 5 MG/MIN
     Route: 042

REACTIONS (1)
  - Serotonin syndrome [Recovering/Resolving]
